FAERS Safety Report 19553434 (Version 1)
Quarter: 2021Q3

REPORT INFORMATION
  Report Type: Spontaneous
  Country: DE (occurrence: DE)
  Receive Date: 20210715
  Receipt Date: 20210715
  Transmission Date: 20211014
  Serious: Yes (Other)
  Sender: FDA-Public Use
  Company Number: DE-SAMSUNG BIOEPIS-SB-2021-16620

PATIENT
  Age: 52 Year
  Sex: Female

DRUGS (5)
  1. TRASTUZUMAB. [Suspect]
     Active Substance: TRASTUZUMAB
     Indication: HER2 POSITIVE BREAST CANCER
     Dosage: STARTING WITH A LOADING DOSE OF 8 MG/KG FOLLOWED BY 6 MG/KG EVERY 3 WEEKS. THE CUMULATIVE DOSE OF TR
     Route: 065
  2. TRASTUZUMAB. [Suspect]
     Active Substance: TRASTUZUMAB
     Dosage: THREE COURSES OF TRASTUZUMAB, UNKNOWN
     Route: 065
  3. PACLITAXEL. [Suspect]
     Active Substance: PACLITAXEL
     Dosage: SEVEN COURSES OF PACLITAXEL, UNKNOWN
     Route: 065
  4. TRASTUZUMAB. [Suspect]
     Active Substance: TRASTUZUMAB
     Dosage: STARTING WITH A LOADING DOSE OF 8 MG/KG FOLLOWED BY 6 MG/KG EVERY 3 WEEKS. THE CUMULATIVE DOSE OF TR
     Route: 065
  5. PACLITAXEL. [Suspect]
     Active Substance: PACLITAXEL
     Indication: HER2 POSITIVE BREAST CANCER
     Dosage: 80 MG/M2, WEEKLY
     Route: 065

REACTIONS (3)
  - Keratitis [Unknown]
  - Immune-mediated adverse reaction [Unknown]
  - Neuropathy peripheral [Unknown]
